FAERS Safety Report 5028630-7 (Version None)
Quarter: 2006Q2

REPORT INFORMATION
  Report Type: 
  Country: None (occurrence: None)
  Receive Date: 20060501
  Receipt Date: 20060126
  Transmission Date: 20061013
  Serious: No
  Sender: FDA-Public Use
  Company Number: 200611053US

PATIENT
  Age: 59 Year
  Sex: Female

DRUGS (6)
  1. KETEK [Suspect]
     Indication: BRONCHITIS
     Dosage: PO
     Route: 048
     Dates: start: 20060116, end: 20060122
  2. LEVOTHYROXINE SODIUM [Concomitant]
  3. VITAMINS NOS (FLINTSTONES MULTIPLE VITAMINS) [Concomitant]
  4. ASCORBIC ACID [Concomitant]
  5. CALCIUM CARBONATE (CALTRATE) [Concomitant]
  6. VITAMIN D [Concomitant]

REACTIONS (1)
  - FATIGUE [None]
